FAERS Safety Report 8809467 (Version 1)
Quarter: 2012Q4

REPORT INFORMATION
  Report Type: 
  Country: EC (occurrence: EC)
  Receive Date: 20120926
  Receipt Date: 20120926
  Transmission Date: 20130627
  Serious: Yes (Hospitalization)
  Sender: FDA-Public Use
  Company Number: PHHY2012EC083658

PATIENT
  Age: 65 Year
  Sex: Male

DRUGS (3)
  1. EXFORGE [Suspect]
     Indication: HYPERTENSION
     Dosage: 1 DF (160 mg vals and 5 mg amlo), BID
     Route: 048
     Dates: start: 2011
  2. GALVUS MET [Concomitant]
     Dosage: 1 DF (850 mg metf and 50 mg vild), UNK
     Dates: start: 20101210
  3. GENTEAL [Concomitant]
     Dosage: UNK UKN, UNK
     Dates: start: 20101111

REACTIONS (2)
  - Lung disorder [Recovering/Resolving]
  - Myocardial infarction [Recovering/Resolving]
